FAERS Safety Report 6736131-0 (Version None)
Quarter: 2010Q2

REPORT INFORMATION
  Report Type: 
  Country: None (occurrence: None)
  Receive Date: 20100521
  Receipt Date: 20100517
  Transmission Date: 20101027
  Serious: Yes (Hospitalization)
  Sender: FDA-Public Use
  Company Number: FR-ROCHE-703854

PATIENT
  Sex: Male
  Weight: 3.4 kg

DRUGS (1)
  1. TAMIFLU [Suspect]
     Indication: DRUG USE FOR UNKNOWN INDICATION
     Route: 048
     Dates: start: 20091104, end: 20091109

REACTIONS (3)
  - FREQUENT BOWEL MOVEMENTS [None]
  - JAUNDICE [None]
  - WEIGHT DECREASED [None]
